FAERS Safety Report 4662382-5 (Version None)
Quarter: 2005Q2

REPORT INFORMATION
  Report Type: 
  Country: None (occurrence: None)
  Receive Date: 20050512
  Receipt Date: 20050504
  Transmission Date: 20051028
  Serious: Yes (Hospitalization, Other)
  Sender: FDA-Public Use
  Company Number: 2005-01553

PATIENT
  Age: 49 Year
  Sex: Male

DRUGS (2)
  1. FUROSEMIDE (WATSON LABORATORIES)(FUROSEMIDE) TABLET, 40MG [Suspect]
     Indication: OEDEMA
     Dosage: 160 MG, DAILY, ORAL; 40 MG, DAILY, ORAL
     Route: 048
  2. CAPTOPRIL [Concomitant]

REACTIONS (3)
  - COLITIS ISCHAEMIC [None]
  - COLITIS ULCERATIVE [None]
  - COLONIC STENOSIS [None]
